FAERS Safety Report 18265676 (Version 1)
Quarter: 2020Q3

REPORT INFORMATION
  Report Type: Spontaneous
  Country: CA (occurrence: CA)
  Receive Date: 20200915
  Receipt Date: 20200915
  Transmission Date: 20201103
  Serious: Yes (Hospitalization)
  Sender: FDA-Public Use
  Company Number: CA-BAUSCH-BL-2020-025890

PATIENT
  Age: 83 Year
  Sex: Male
  Weight: 100 kg

DRUGS (24)
  1. FOLIC ACID. [Suspect]
     Active Substance: FOLIC ACID
     Indication: PRODUCT USED FOR UNKNOWN INDICATION
     Route: 048
  2. HUMALOG [Suspect]
     Active Substance: INSULIN LISPRO
     Indication: PRODUCT USED FOR UNKNOWN INDICATION
     Route: 065
  3. SINGULAIR [Suspect]
     Active Substance: MONTELUKAST SODIUM
     Indication: PRODUCT USED FOR UNKNOWN INDICATION
     Route: 065
  4. PREDNISONE. [Concomitant]
     Active Substance: PREDNISONE
     Route: 048
  5. DILTIAZEM CD [Suspect]
     Active Substance: DILTIAZEM
     Indication: PRODUCT USED FOR UNKNOWN INDICATION
     Dosage: CAPSULE, CONTROLLED DELIVERY
     Route: 048
  6. PRAVASTATIN. [Suspect]
     Active Substance: PRAVASTATIN
     Indication: PRODUCT USED FOR UNKNOWN INDICATION
     Route: 048
  7. TIOTROPIUM [Suspect]
     Active Substance: TIOTROPIUM
     Indication: PRODUCT USED FOR UNKNOWN INDICATION
  8. PREDNISONE. [Concomitant]
     Active Substance: PREDNISONE
     Indication: PRODUCT USED FOR UNKNOWN INDICATION
     Route: 048
  9. PREDNISONE. [Concomitant]
     Active Substance: PREDNISONE
     Route: 048
  10. SALBUTAMOL [Suspect]
     Active Substance: ALBUTEROL
     Indication: PRODUCT USED FOR UNKNOWN INDICATION
  11. UMECLIDINIUM BROMIDE [Suspect]
     Active Substance: UMECLIDINIUM BROMIDE
     Indication: PRODUCT USED FOR UNKNOWN INDICATION
  12. OMALIZUMAB. [Suspect]
     Active Substance: OMALIZUMAB
     Indication: PRODUCT USED FOR UNKNOWN INDICATION
     Route: 058
  13. APIXABAN [Concomitant]
     Active Substance: APIXABAN
     Indication: ATRIAL FIBRILLATION
     Route: 048
  14. IPRATROPIUM BROMIDE. [Suspect]
     Active Substance: IPRATROPIUM BROMIDE
     Indication: PRODUCT USED FOR UNKNOWN INDICATION
     Route: 065
  15. EZETIMIBE. [Suspect]
     Active Substance: EZETIMIBE
     Indication: PRODUCT USED FOR UNKNOWN INDICATION
     Route: 048
  16. MONTELUKAST [Suspect]
     Active Substance: MONTELUKAST SODIUM
     Indication: PRODUCT USED FOR UNKNOWN INDICATION
     Route: 048
  17. ZENHALE [Suspect]
     Active Substance: FORMOTEROL FUMARATE\MOMETASONE FUROATE
     Indication: PRODUCT USED FOR UNKNOWN INDICATION
     Dosage: DOSAGE FORM: AEROSOL, METERED DOSE
  18. EZETROL [Suspect]
     Active Substance: EZETIMIBE
     Indication: PRODUCT USED FOR UNKNOWN INDICATION
     Route: 065
  19. METHOTREXATE. [Suspect]
     Active Substance: METHOTREXATE
     Indication: PRODUCT USED FOR UNKNOWN INDICATION
     Route: 048
  20. PREDNISONE. [Concomitant]
     Active Substance: PREDNISONE
     Route: 048
  21. OMNARIS [Suspect]
     Active Substance: CICLESONIDE
     Indication: PRODUCT USED FOR UNKNOWN INDICATION
     Dosage: DOSAGE FORM: SPRAY, METERED DOSE
     Route: 050
  22. LANTUS [Concomitant]
     Active Substance: INSULIN GLARGINE
     Indication: TYPE 2 DIABETES MELLITUS
     Route: 058
  23. PREDNISONE. [Concomitant]
     Active Substance: PREDNISONE
     Indication: ASTHMA
     Route: 048
  24. INSULIN LISPRO [Concomitant]
     Active Substance: INSULIN LISPRO
     Indication: TYPE 2 DIABETES MELLITUS
     Route: 065

REACTIONS (14)
  - Asthma [Unknown]
  - Diaphragmatic disorder [Unknown]
  - Oropharyngeal pain [Unknown]
  - Weight increased [Unknown]
  - Chest discomfort [Unknown]
  - Pyrexia [Unknown]
  - Left ventricular hypertrophy [Unknown]
  - Blood count abnormal [Unknown]
  - Dyspnoea [Unknown]
  - Obstructive airways disorder [Unknown]
  - Therapeutic product effect incomplete [Unknown]
  - Discomfort [Unknown]
  - Hypoxia [Unknown]
  - Oedema peripheral [Unknown]
